FAERS Safety Report 15302314 (Version 4)
Quarter: 2018Q3

REPORT INFORMATION
  Report Type: Spontaneous
  Country: SK (occurrence: SK)
  Receive Date: 20180821
  Receipt Date: 20180906
  Transmission Date: 20181010
  Serious: Yes (Other)
  Sender: FDA-Public Use
  Company Number: SK-PFIZER INC-2018332209

PATIENT
  Age: 57 Year
  Sex: Male

DRUGS (4)
  1. VORICONAZOLE. [Concomitant]
     Active Substance: VORICONAZOLE
     Indication: SINUSITIS
     Dosage: UNK
     Dates: start: 201412
  2. VORICONAZOLE. [Concomitant]
     Active Substance: VORICONAZOLE
     Indication: ASPERGILLUS INFECTION
     Dosage: 200 MG, DAILY
  3. IMMUNOGLOBULINS NOS [Concomitant]
     Active Substance: IMMUNE GLOBULIN NOS
     Dosage: 20 G, (0.2 G/KG)
  4. IBRUTINIB [Suspect]
     Active Substance: IBRUTINIB
     Indication: CHRONIC LYMPHOCYTIC LEUKAEMIA
     Dosage: 420 MG, DAILY
     Dates: start: 201412

REACTIONS (6)
  - Cholecystitis [Unknown]
  - Hypogammaglobulinaemia [Unknown]
  - Thrombocytopenia [Unknown]
  - Neutrophil count increased [Unknown]
  - Cholelithiasis [Unknown]
  - White blood cell count increased [Unknown]

NARRATIVE: CASE EVENT DATE: 201501
